FAERS Safety Report 8126336-9 (Version None)
Quarter: 2012Q1

REPORT INFORMATION
  Report Type: 
  Country: None (occurrence: None)
  Receive Date: 20120209
  Receipt Date: 20120130
  Transmission Date: 20120608
  Serious: Yes (Life-Threatening, Hospitalization)
  Sender: FDA-Public Use
  Company Number: US-ROCHE-1036250

PATIENT
  Sex: Female
  Weight: 74.5 kg

DRUGS (9)
  1. ZYRTEC [Concomitant]
  2. SINGULAIR [Concomitant]
  3. XOLAIR [Suspect]
     Indication: ASTHMA
     Route: 058
     Dates: start: 20111201, end: 20120127
  4. ALBUTEROL [Concomitant]
     Dosage: CONCOMITANT MED
  5. FLOVENT [Concomitant]
  6. NASONEX [Concomitant]
  7. OSTELIN [Concomitant]
  8. ALBUTEROL [Concomitant]
     Dosage: PATIENT WAS TREATED WITH SALBUTAMOL
  9. ADVAIR DISKUS 100/50 [Concomitant]

REACTIONS (1)
  - WHEEZING [None]
